FAERS Safety Report 4395799-7 (Version None)
Quarter: 2004Q3

REPORT INFORMATION
  Report Type: 
  Country: None (occurrence: None)
  Receive Date: 20040713
  Receipt Date: 20040629
  Transmission Date: 20050211
  Serious: Yes (Other)
  Sender: FDA-Public Use
  Company Number: US-ROCHE-372747

PATIENT
  Age: 20 Year
  Sex: Male

DRUGS (1)
  1. ROCEPHIN [Suspect]
     Indication: ENDOCARDITIS
     Route: 042
     Dates: start: 20040625, end: 20040628

REACTIONS (9)
  - ABDOMINAL PAIN UPPER [None]
  - ALANINE AMINOTRANSFERASE INCREASED [None]
  - ASPARTATE AMINOTRANSFERASE INCREASED [None]
  - CHOLELITHIASIS [None]
  - DISEASE RECURRENCE [None]
  - ENDOCARDITIS [None]
  - HEPATOMEGALY [None]
  - NAUSEA [None]
  - VOMITING [None]
